FAERS Safety Report 8779004 (Version 1)
Quarter: 2012Q4

REPORT INFORMATION
  Report Type: 
  Country: US (occurrence: US)
  Receive Date: 20120912
  Receipt Date: 20120912
  Transmission Date: 20130627
  Serious: No
  Sender: FDA-Public Use
  Company Number: US-BAYER-2012-089474

PATIENT
  Age: 55 Year
  Sex: Female

DRUGS (1)
  1. AVELOX [Suspect]
     Indication: PNEUMONIA PRIMARY ATYPICAL
     Dosage: 400 mg, QD
     Route: 048
     Dates: start: 20120723, end: 20120726

REACTIONS (3)
  - Superficial vein prominence [Recovering/Resolving]
  - Vein discolouration [Recovering/Resolving]
  - Contusion [Recovering/Resolving]
